FAERS Safety Report 5180944-6 (Version None)
Quarter: 2006Q4

REPORT INFORMATION
  Report Type: 
  Country: None (occurrence: None)
  Receive Date: 20061215
  Receipt Date: 20061215
  Transmission Date: 20070319
  Serious: Yes (Other)
  Sender: FDA-Public Use
  Company Number: None

PATIENT
  Age: 51 Year
  Sex: Male
  Weight: 79.3795 kg

DRUGS (2)
  1. EQUATE ACETAMINOPHEN    100 CAPLETS  500 MG. EACH   PERRIGO, ALLEGAN, [Suspect]
     Indication: PAIN
     Dosage: TWO   500 CAPLETS   AS NEEDED  PO
     Route: 048
     Dates: end: 20061109
  2. EQUATE ACETAMINOPHEN   100 CAPLETS  500 MG. EACH   PERRIGO, ALLEGAN, M [Suspect]
     Indication: PAIN
     Dosage: TWO  500 CAPLETS  AS NEEDED  PO
     Route: 048
     Dates: end: 20061109

REACTIONS (4)
  - COUGH [None]
  - HAEMOPTYSIS [None]
  - HAEMORRHAGE [None]
  - TONGUE DISCOLOURATION [None]
